FAERS Safety Report 6668065-4 (Version None)
Quarter: 2010Q2

REPORT INFORMATION
  Report Type: 
  Country: None (occurrence: None)
  Receive Date: 20100405
  Receipt Date: 20100323
  Transmission Date: 20101027
  Serious: Yes (Other)
  Sender: FDA-Public Use
  Company Number: JP-AMGEN-US395056

PATIENT
  Age: 47 Year
  Sex: Female

DRUGS (2)
  1. ENBREL [Suspect]
     Indication: RHEUMATOID ARTHRITIS
     Dosage: DOSE UNKNOWN
     Route: 058
     Dates: start: 20090101
  2. RHEUMATREX [Suspect]
     Dosage: DOSE UNKNOWN, REDUCED FROM 3 CAPSULES TO 2 CAPSULES
     Route: 048
     Dates: end: 20091003

REACTIONS (5)
  - BACK PAIN [None]
  - COUGH [None]
  - DYSPNOEA [None]
  - INJECTION SITE PRURITUS [None]
  - MALAISE [None]
